FAERS Safety Report 8309422-X (Version None)
Quarter: 2012Q2

REPORT INFORMATION
  Report Type: 
  Country: None (occurrence: None)
  Receive Date: 20120424
  Receipt Date: 20120424
  Transmission Date: 20120825
  Serious: No
  Sender: FDA-Public Use
  Company Number: None

PATIENT
  Age: 46 Year
  Sex: Male

DRUGS (1)
  1. BACTRIM [Suspect]
     Dosage: #60

REACTIONS (1)
  - NO THERAPEUTIC RESPONSE [None]
